FAERS Safety Report 7949219-3 (Version None)
Quarter: 2011Q4

REPORT INFORMATION
  Report Type: 
  Country: None (occurrence: None)
  Receive Date: 20111130
  Receipt Date: 20111117
  Transmission Date: 20120403
  Serious: Yes (Hospitalization)
  Sender: FDA-Public Use
  Company Number: FR-ROCHE-1007392

PATIENT
  Age: 28 Year
  Sex: Female

DRUGS (4)
  1. PIPERACILLIN AND TAZOBACTAM [Suspect]
     Indication: PRODUCT USED FOR UNKNOWN INDICATION
     Dates: start: 20111005, end: 20111006
  2. FLAGYL [Suspect]
     Indication: PRODUCT USED FOR UNKNOWN INDICATION
     Dates: start: 20111005, end: 20111007
  3. LEVOFLOXACIN [Suspect]
     Indication: PRODUCT USED FOR UNKNOWN INDICATION
     Dates: start: 20111005, end: 20111007
  4. ROCEPHIN [Suspect]
     Indication: PRODUCT USED FOR UNKNOWN INDICATION
     Dates: start: 20111006

REACTIONS (7)
  - APLASIA PURE RED CELL [None]
  - LYMPHOCYTOSIS [None]
  - EOSINOPHILIA [None]
  - THROMBOCYTOPENIA [None]
  - OEDEMA PERIPHERAL [None]
  - PLEURAL EFFUSION [None]
  - PULMONARY CONGESTION [None]
